FAERS Safety Report 19773093 (Version 1)
Quarter: 2021Q3

REPORT INFORMATION
  Report Type: Report from Study
  Country: CA (occurrence: CA)
  Receive Date: 20210901
  Receipt Date: 20210901
  Transmission Date: 20211014
  Serious: Yes (Other)
  Sender: FDA-Public Use
  Company Number: CA-JNJFOC-20210855270

PATIENT
  Sex: Male
  Weight: 3.18 kg

DRUGS (1)
  1. REMICADE [Suspect]
     Active Substance: INFLIXIMAB
     Indication: CROHN^S DISEASE
     Dosage: ON 06?AUG?2021, THE PATIENT^S FATHER RECEIVED LAST REMICADE INFUSION
     Route: 064

REACTIONS (3)
  - Umbilical cord around neck [Recovered/Resolved]
  - Meconium in amniotic fluid [Recovering/Resolving]
  - Foetal exposure during pregnancy [Recovered/Resolved]
